FAERS Safety Report 5225820-5 (Version None)
Quarter: 2007Q1

REPORT INFORMATION
  Report Type: 
  Country: None (occurrence: None)
  Receive Date: 20070130
  Receipt Date: 20070130
  Transmission Date: 20070707
  Serious: Yes (Other)
  Sender: FDA-Public Use
  Company Number: None

PATIENT
  Age: 33 Year
  Sex: Female
  Weight: 61.2356 kg

DRUGS (3)
  1. AVELOX [Suspect]
     Indication: SINUSITIS
     Dosage: 400 MG   QD   PO
     Route: 048
     Dates: start: 20070123, end: 20070124
  2. METHYLPREDNISILONE [Concomitant]
  3. NASACORT AQ [Concomitant]

REACTIONS (4)
  - ARTHRALGIA [None]
  - IMPAIRED DRIVING ABILITY [None]
  - IMPAIRED WORK ABILITY [None]
  - TENDON DISORDER [None]
